FAERS Safety Report 5905719-9 (Version None)
Quarter: 2008Q4

REPORT INFORMATION
  Report Type: 
  Country: None (occurrence: None)
  Receive Date: 20081002
  Receipt Date: 20080925
  Transmission Date: 20090506
  Serious: Yes (Life-Threatening)
  Sender: FDA-Public Use
  Company Number: PHHO1996FR03133

PATIENT
  Sex: Male
  Weight: 70 kg

DRUGS (11)
  1. NEORAL [Suspect]
     Route: 048
     Dates: start: 19960319
  2. CYMEVAN [Concomitant]
     Dosage: UNSPECIFIED
     Route: 042
     Dates: start: 19960617
  3. TRIFLUCAN [Concomitant]
     Dosage: UNSPECIFIED
     Route: 048
     Dates: start: 19960531
  4. FLAGYL [Concomitant]
     Dosage: UNSPECIFIED
     Route: 048
     Dates: start: 19960531
  5. FRAXIPARINE [Concomitant]
     Dosage: UNSPECIFIED
     Route: 058
     Dates: start: 19960605
  6. LEVOTHYROX [Concomitant]
     Dosage: UNSPECIFIED
     Route: 048
     Dates: start: 19960407
  7. URBANYL [Concomitant]
     Dosage: UNSPECIFIED
     Route: 048
     Dates: start: 19960607
  8. ALTHYMIL [Concomitant]
     Dosage: UNSPECIFIED
     Route: 048
     Dates: start: 19960521
  9. SABRIL [Concomitant]
     Dosage: UNSPECIFIED
     Route: 048
     Dates: start: 19960320
  10. RANIPLEX [Concomitant]
     Dosage: UNSPECIFIED
     Route: 042
     Dates: start: 19960327
  11. SOLUPRED [Concomitant]
     Dosage: UNSPECIFIED
     Route: 048
     Dates: start: 19960412

REACTIONS (3)
  - COMA [None]
  - ENCEPHALITIS [None]
  - RESPIRATORY DISTRESS [None]
